FAERS Safety Report 16923189 (Version 1)
Quarter: 2019Q4

REPORT INFORMATION
  Report Type: Report from Study
  Country: None (occurrence: DE)
  Receive Date: 20191016
  Receipt Date: 20191016
  Transmission Date: 20200122
  Serious: Yes (Death, Life-Threatening, Hospitalization)
  Sender: FDA-Public Use
  Company Number: DE-ABBVIE-19K-062-2966272-00

PATIENT
  Age: 61 Year
  Sex: Female

DRUGS (1)
  1. DUODOPA [Suspect]
     Active Substance: CARBIDOPA\LEVODOPA
     Indication: PARKINSON^S DISEASE
     Dosage: MD 6ML; CRD 5ML/H; CRN 2.3; ED 0.5ML?20 MG/ML 5 MG/ML
     Route: 050
     Dates: start: 20190613

REACTIONS (4)
  - Diarrhoea [Not Recovered/Not Resolved]
  - Death [Fatal]
  - Aspiration [Not Recovered/Not Resolved]
  - Vomiting [Not Recovered/Not Resolved]

NARRATIVE: CASE EVENT DATE: 2019
